FAERS Safety Report 5061669-4 (Version None)
Quarter: 2006Q3

REPORT INFORMATION
  Report Type: 
  Country: None (occurrence: None)
  Receive Date: 20060721
  Receipt Date: 20060707
  Transmission Date: 20061208
  Serious: Yes (Death)
  Sender: FDA-Public Use
  Company Number: 2006S1000057

PATIENT
  Age: 71 Year
  Sex: Female

DRUGS (7)
  1. CUBICIN [Suspect]
     Indication: BACTERAEMIA
     Dosage: 250 MG;Q24H;IV
     Route: 042
     Dates: start: 20050705
  2. PREDNISONE [Concomitant]
  3. AZATHIOPRINE SODIUM [Concomitant]
  4. PLAQUENIL [Concomitant]
  5. VANCOMYCIN [Concomitant]
  6. AMIKACIN [Concomitant]
  7. LEVOFLOXACIN [Concomitant]

REACTIONS (8)
  - BACTERIAL SEPSIS [None]
  - CARDIAC FAILURE CONGESTIVE [None]
  - CHILLS [None]
  - DEVICE RELATED INFECTION [None]
  - DYSPNOEA [None]
  - KLEBSIELLA INFECTION [None]
  - SPINAL DISORDER [None]
  - URINARY TRACT INFECTION [None]
